FAERS Safety Report 9895277 (Version 1)
Quarter: 2014Q1

REPORT INFORMATION
  Report Type: Spontaneous
  Country: US (occurrence: US)
  Receive Date: 20140213
  Receipt Date: 20140213
  Transmission Date: 20141002
  Serious: No
  Sender: FDA-Public Use
  Company Number: US-BRISTOL-MYERS SQUIBB COMPANY-18718643

PATIENT
  Age: 71 Year
  Sex: Female
  Weight: 90.7 kg

DRUGS (10)
  1. ORENCIA FOR INJ [Suspect]
     Indication: RHEUMATOID ARTHRITIS
     Dosage: DOSE VALUE: 125MG/ML
     Route: 058
     Dates: end: 20130308
  2. DICLOFENAC [Concomitant]
  3. LEXAPRO [Concomitant]
  4. LYRICA [Concomitant]
  5. MIRALAX [Concomitant]
  6. OMEPRAZOLE [Concomitant]
  7. OXYCODONE [Concomitant]
  8. SIMVASTATIN [Concomitant]
  9. TRAMADOL [Concomitant]
  10. VITAMIN D [Concomitant]

REACTIONS (1)
  - Adverse event [Unknown]
